FAERS Safety Report 11319211 (Version 1)
Quarter: 2015Q3

REPORT INFORMATION
  Report Type: Spontaneous
  Country: US (occurrence: None)
  Receive Date: 20150727
  Receipt Date: 20150727
  Transmission Date: 20151125
  Serious: Yes (Other)
  Sender: FDA-Public Use
  Company Number: ADR-2015-01402

PATIENT
  Age: 65 Year
  Sex: Female

DRUGS (3)
  1. COMPOUNDED BACLOFEN INTRATHECAL 400MCG/ML [Suspect]
     Active Substance: BACLOFEN
     Indication: PAIN
  2. BUPIVACAINE INTRATHECAL 10 MG/ML [Suspect]
     Active Substance: BUPIVACAINE
  3. MORPHINE INTRATHECAL 40MCG/ML [Suspect]
     Active Substance: MORPHINE
     Indication: PAIN

REACTIONS (3)
  - Malaise [None]
  - Osteomyelitis [None]
  - Urinary tract infection [None]
